FAERS Safety Report 16178898 (Version 1)
Quarter: 2019Q2

REPORT INFORMATION
  Report Type: Spontaneous
  Country: ES (occurrence: ES)
  Receive Date: 20190410
  Receipt Date: 20190410
  Transmission Date: 20190711
  Serious: Yes (Death, Life-Threatening, Other)
  Sender: FDA-Public Use
  Company Number: ES-BAUSCH-BL-2019-010327

PATIENT
  Age: 74 Year
  Sex: Male

DRUGS (6)
  1. FLUOROURACIL. [Suspect]
     Active Substance: FLUOROURACIL
     Indication: ADENOCARCINOMA
  2. OXALIPLATIN. [Suspect]
     Active Substance: OXALIPLATIN
     Indication: METASTASES TO LIVER
     Dosage: DAILY DOSE: QCY
     Route: 065
  3. FLUOROURACIL. [Suspect]
     Active Substance: FLUOROURACIL
     Indication: METASTASES TO LIVER
     Dosage: DAILY DOSE: QCY
     Route: 065
  4. FOLINIC ACID [Suspect]
     Active Substance: LEUCOVORIN
     Indication: METASTASES TO LIVER
     Dosage: DAILY DOSE: QCY
     Route: 065
  5. FOLINIC ACID [Suspect]
     Active Substance: LEUCOVORIN
     Indication: ADENOCARCINOMA
  6. OXALIPLATIN. [Suspect]
     Active Substance: OXALIPLATIN
     Indication: ADENOCARCINOMA
     Dosage: DAILY DOSE: QCY
     Route: 065

REACTIONS (11)
  - Radiation interaction [Unknown]
  - Therapeutic response decreased [Unknown]
  - Ascites [Unknown]
  - Pulmonary fibrosis [Unknown]
  - Hypoalbuminaemia [Unknown]
  - Hyperbilirubinaemia [Unknown]
  - Carcinoembryonic antigen increased [Recovered/Resolved]
  - Disease progression [Unknown]
  - Abdominal discomfort [Unknown]
  - Hepatic failure [Fatal]
  - Encephalopathy [Unknown]
